FAERS Safety Report 9108235 (Version 1)
Quarter: 2013Q1

REPORT INFORMATION
  Report Type: Spontaneous
  Country: SG (occurrence: SG)
  Receive Date: 20130222
  Receipt Date: 20130222
  Transmission Date: 20140127
  Serious: Yes (Other)
  Sender: FDA-Public Use
  Company Number: SG-PFIZER INC-2013062813

PATIENT
  Age: 61 Year
  Sex: Female

DRUGS (1)
  1. GLIPIZIDE [Suspect]
     Dosage: 2.5 MG, 1X/DAY

REACTIONS (1)
  - Hypoglycaemia [Unknown]
